FAERS Safety Report 10607340 (Version 1)
Quarter: 2014Q4

REPORT INFORMATION
  Report Type: Spontaneous
  Country: US (occurrence: None)
  Receive Date: 20141124
  Receipt Date: 20141124
  Transmission Date: 20150529
  Serious: Yes (Hospitalization)
  Sender: FDA-Public Use
  Company Number: None

PATIENT
  Age: 62 Year
  Sex: Female
  Weight: 84.4 kg

DRUGS (21)
  1. APAP [Concomitant]
     Active Substance: ACETAMINOPHEN
  2. FERROUS SULFATE [Concomitant]
     Active Substance: FERROUS SULFATE\FERROUS SULFATE, DRIED
  3. LORATADINE. [Concomitant]
     Active Substance: LORATADINE
  4. PRAVASTATIN [Concomitant]
     Active Substance: PRAVASTATIN\PRAVASTATIN SODIUM
  5. GABAPENTIN. [Suspect]
     Active Substance: GABAPENTIN
     Dosage: CHRONIC
  6. TRAMADOL [Suspect]
     Active Substance: TRAMADOL
     Dosage: CHRONIC
  7. ALBUTEROL. [Concomitant]
     Active Substance: ALBUTEROL
  8. PLAVIX [Concomitant]
     Active Substance: CLOPIDOGREL BISULFATE
  9. FERROUS GLUCONATE [Concomitant]
     Active Substance: FERROUS GLUCONATE
  10. AMITRIPTYLINE [Suspect]
     Active Substance: AMITRIPTYLINE
     Indication: DEPRESSION
     Dosage: CHRONIC
  11. CYANOCOBALAMIN. [Concomitant]
     Active Substance: CYANOCOBALAMIN
  12. DICLOFENAC [Concomitant]
     Active Substance: DICLOFENAC
  13. VOLTAREN [Concomitant]
     Active Substance: DICLOFENAC SODIUM
  14. FOLIC ACID. [Concomitant]
     Active Substance: FOLIC ACID
  15. ATENOLOL. [Concomitant]
     Active Substance: ATENOLOL
  16. REGLAN [Concomitant]
     Active Substance: METOCLOPRAMIDE HYDROCHLORIDE
  17. OMEPRAZOLE. [Concomitant]
     Active Substance: OMEPRAZOLE
  18. ARTHROTEC [Concomitant]
     Active Substance: DICLOFENAC SODIUM\MISOPROSTOL
  19. DILAUDID [Suspect]
     Active Substance: HYDROMORPHONE HYDROCHLORIDE
     Indication: PAIN
     Dosage: CHRONIC
  20. OXYCODONE [Suspect]
     Active Substance: OXYCODONE
     Indication: PAIN
     Dosage: CHRONIC
  21. ASA [Concomitant]
     Active Substance: ASPIRIN

REACTIONS (4)
  - Lethargy [None]
  - Accidental overdose [None]
  - Mental status changes [None]
  - Agitation [None]

NARRATIVE: CASE EVENT DATE: 20140628
